FAERS Safety Report 5336803-9 (Version None)
Quarter: 2007Q2

REPORT INFORMATION
  Report Type: 
  Country: None (occurrence: None)
  Receive Date: 20070524
  Receipt Date: 20070524
  Transmission Date: 20071010
  Serious: Yes (Hospitalization)
  Sender: FDA-Public Use
  Company Number: None

PATIENT
  Sex: Female
  Weight: 57.1532 kg

DRUGS (5)
  1. XELODA [Suspect]
     Indication: PANCREATIC CARCINOMA METASTATIC
     Dosage: 1500MG BIDX14DAYS, 7DOFF ORALLY
     Route: 048
     Dates: start: 20070509, end: 20070520
  2. PROTONIX [Concomitant]
  3. ATIVAN [Concomitant]
  4. COMPAZINE [Concomitant]
  5. ZOFRAN [Concomitant]

REACTIONS (8)
  - ANOREXIA [None]
  - ELECTROCARDIOGRAM ST-T SEGMENT DEPRESSION [None]
  - FATIGUE [None]
  - INFUSION RELATED REACTION [None]
  - NAUSEA [None]
  - NO THERAPEUTIC RESPONSE [None]
  - TEMPERATURE INTOLERANCE [None]
  - VOMITING [None]
